FAERS Safety Report 4817153-3 (Version None)
Quarter: 2005Q4

REPORT INFORMATION
  Report Type: 
  Country: None (occurrence: None)
  Receive Date: 20051101
  Receipt Date: 20051004
  Transmission Date: 20060501
  Serious: Yes (Hospitalization)
  Sender: FDA-Public Use
  Company Number: JP-ROCHE-419821

PATIENT
  Age: 72 Year
  Sex: Male

DRUGS (10)
  1. PANALDINE [Suspect]
     Indication: THROMBOSIS PROPHYLAXIS
     Dosage: INDICATION REPORTED AS ^THROMBOSIS PROPHYLAXIS / CYPHER STENT PLACEMENT / ACUTE MYOCARDIAL INFARCTI+
     Route: 048
     Dates: start: 20050620, end: 20050912
  2. ASPIRIN [Suspect]
     Indication: THROMBOSIS PROPHYLAXIS
     Dosage: INDICATION REPORTED AS ^THROMBOSIS PROPHYLAXIS / CYPHER STENT PLACEMENT / ACUTE MYOCARDIAL INFARCTI+
     Route: 048
     Dates: start: 20050610, end: 20050916
  3. ASPIRIN [Suspect]
     Route: 048
     Dates: start: 20050927
  4. WARFARIN [Suspect]
     Indication: THROMBOSIS PROPHYLAXIS
     Dosage: INDICATION REPORTED AS ^THROMBOSIS PROPHYLAXIS / STENT PLACEMENT/^.
     Route: 048
     Dates: start: 20050618, end: 20050802
  5. WARFARIN [Suspect]
     Route: 048
     Dates: start: 20050803, end: 20050912
  6. ISOSORBIDE MONONITRATE [Concomitant]
     Route: 048
     Dates: start: 20050610
  7. SELBEX [Concomitant]
     Route: 048
     Dates: start: 20050610
  8. SELOKEN [Concomitant]
     Route: 048
     Dates: start: 20050610
  9. OMEPRAL [Concomitant]
     Route: 048
     Dates: start: 20050612
  10. CAPTOPRIL [Concomitant]
     Route: 048
     Dates: start: 20050612

REACTIONS (2)
  - DISEASE PROGRESSION [None]
  - INTERSTITIAL LUNG DISEASE [None]
